FAERS Safety Report 10045998 (Version 2)
Quarter: 2014Q2

REPORT INFORMATION
  Report Type: Report from Study
  Country: DE (occurrence: DE)
  Receive Date: 20140330
  Receipt Date: 20140507
  Transmission Date: 20141212
  Serious: Yes (Hospitalization, Other)
  Sender: FDA-Public Use
  Company Number: DE-009507513-1403DEU010731

PATIENT
  Age: 47 Year
  Sex: Male
  Weight: 76 kg

DRUGS (4)
  1. RIBAVIRIN [Suspect]
     Indication: HEPATITIS C
     Dosage: UNK
     Route: 048
     Dates: start: 200209, end: 20031230
  2. INTERFERON ALFA-2B [Suspect]
     Indication: HEPATITIS C
     Dosage: UNK
     Dates: start: 200209, end: 20031230
  3. METOPROLOL [Concomitant]
     Indication: HYPERTENSION
     Dosage: UNK, QD
     Dates: start: 2001
  4. ACETAMINOPHEN [Concomitant]
     Dosage: UNK, PRN

REACTIONS (1)
  - Agranulocytosis [Recovered/Resolved]
